FAERS Safety Report 24805743 (Version 1)
Quarter: 2025Q1

REPORT INFORMATION
  Report Type: Spontaneous
  Country: CN (occurrence: CN)
  Receive Date: 20250103
  Receipt Date: 20250103
  Transmission Date: 20250408
  Serious: Yes (Other)
  Sender: PFIZER
  Company Number: CN-PFIZER INC-PV202400170050

PATIENT
  Age: 44 Year
  Sex: Female
  Weight: 67.5 kg

DRUGS (6)
  1. EPIRUBICIN [Suspect]
     Active Substance: EPIRUBICIN
     Indication: Symptomatic treatment
     Dosage: 120 MG, 1X/DAY
     Route: 041
     Dates: start: 20240903, end: 20240903
  2. EPIRUBICIN [Suspect]
     Active Substance: EPIRUBICIN
     Indication: Breast cancer female
     Dates: start: 20240926
  3. CYCLOPHOSPHAMIDE [Suspect]
     Active Substance: CYCLOPHOSPHAMIDE
     Indication: Symptomatic treatment
     Dosage: 0.85 G, 1X/DAY
     Route: 042
     Dates: start: 20240903, end: 20240903
  4. CYCLOPHOSPHAMIDE [Suspect]
     Active Substance: CYCLOPHOSPHAMIDE
     Indication: Breast cancer female
     Dates: start: 20240926
  5. DOCETAXEL [Suspect]
     Active Substance: DOCETAXEL
     Indication: Symptomatic treatment
     Dosage: 120 MG, 1X/DAY
     Route: 042
     Dates: start: 20240903, end: 20240903
  6. DOCETAXEL [Suspect]
     Active Substance: DOCETAXEL
     Indication: Breast cancer female
     Dates: start: 20240926

REACTIONS (1)
  - Hepatic function abnormal [Unknown]

NARRATIVE: CASE EVENT DATE: 20240926
